FAERS Safety Report 13891349 (Version 2)
Quarter: 2017Q4

REPORT INFORMATION
  Report Type: Report from Study
  Country: CN (occurrence: CN)
  Receive Date: 20170822
  Receipt Date: 20171102
  Transmission Date: 20180320
  Serious: Yes (Death, Hospitalization)
  Sender: FDA-Public Use
  Company Number: CN-ROCHE-1831918

PATIENT
  Age: 63 Year
  Sex: Male
  Weight: 61 kg

DRUGS (28)
  1. ATEZOLIZUMAB. [Suspect]
     Active Substance: ATEZOLIZUMAB
     Indication: NON-SMALL CELL LUNG CANCER
     Dosage: MOST RECENT DOSE (1200 MG) PRIOR TO EVENT: 29/AUG/2016
     Route: 042
     Dates: start: 20160829
  2. ACETAMINOPHEN/OXYCODONE [Concomitant]
     Active Substance: ACETAMINOPHEN\OXYCODONE HYDROCHLORIDE
     Dosage: RELIEVE PAIN
     Route: 065
     Dates: start: 20160826, end: 20160826
  3. CODEINE PHOSPHATE [Concomitant]
     Active Substance: CODEINE PHOSPHATE
     Route: 065
     Dates: start: 20160816, end: 20160829
  4. HAEMOCOAGULASE [Concomitant]
     Indication: HAEMOSTASIS
     Route: 065
     Dates: start: 20160818, end: 20160820
  5. ACETAMINOPHEN/OXYCODONE [Concomitant]
     Active Substance: ACETAMINOPHEN\OXYCODONE HYDROCHLORIDE
     Dosage: RELIEVE PAIN
     Route: 065
     Dates: start: 20160828, end: 20160829
  6. ACETYLCYSTEINE. [Concomitant]
     Active Substance: ACETYLCYSTEINE
     Dosage: ANTI-ASTHMA
     Route: 065
     Dates: start: 20160816, end: 20160904
  7. MONTELUKAST [Concomitant]
     Active Substance: MONTELUKAST SODIUM
     Dosage: ANTI-ASTHMA
     Route: 065
     Dates: start: 20160817, end: 20160830
  8. ALBUTEROL/IPRATROPIUM [Concomitant]
     Active Substance: ALBUTEROL\IPRATROPIUM
     Dosage: IPRATROPIUM BROMIDE?ANTI-ASTHMA
     Route: 065
     Dates: start: 20160818, end: 20160824
  9. LORATADINE. [Concomitant]
     Active Substance: LORATADINE
     Dosage: ANTI ALLERGY
     Route: 065
     Dates: start: 20160817, end: 20160830
  10. OMEPRAZOLE SODIUM [Concomitant]
     Active Substance: OMEPRAZOLE SODIUM
     Dosage: STOMACH-PROTECTING
     Route: 065
     Dates: start: 20160818, end: 20160818
  11. ISOSORBIDE DINITRATE. [Concomitant]
     Active Substance: ISOSORBIDE DINITRATE
     Dosage: ANTI-HYPERTENSION
     Route: 065
     Dates: start: 20160818, end: 20160819
  12. POTASSIUM CHLORIDE. [Concomitant]
     Active Substance: POTASSIUM CHLORIDE
     Dosage: SOLUTION?POTASSIUM SUPPLEMENT
     Route: 065
     Dates: start: 20160821, end: 20160824
  13. THYMALFASIN [Concomitant]
     Active Substance: THYMALFASIN
     Dosage: ENHANCE IMMUNITY
     Route: 065
     Dates: start: 20160816, end: 20160818
  14. ALPRAZOLAM. [Concomitant]
     Active Substance: ALPRAZOLAM
     Indication: INSOMNIA
     Route: 065
     Dates: start: 20160817, end: 20160830
  15. AMBROXOL HYDROCHLORIDE [Concomitant]
     Active Substance: AMBROXOL HYDROCHLORIDE
     Dosage: ANTI-ASTHMA
     Route: 065
     Dates: start: 20160817, end: 20160830
  16. ENTERAL NUTRITION [Concomitant]
     Active Substance: DIETARY SUPPLEMENT
     Dosage: ENTERAL NUTRITIONAL POWDER?ENHANCED NUTRITION
     Route: 065
     Dates: start: 20160817, end: 20160818
  17. CODEINE PHOSPHATE [Concomitant]
     Active Substance: CODEINE PHOSPHATE
     Dosage: RELIEVING COUGH
     Route: 065
     Dates: end: 20160904
  18. PIPERACILLIN AND TAZOBACTAM [Concomitant]
     Active Substance: PIPERACILLIN SODIUM\TAZOBACTAM SODIUM
     Dosage: ANTIINFLAMMATORY
     Route: 065
     Dates: start: 20160818, end: 20160818
  19. HAEMOCOAGULASE [Concomitant]
     Route: 065
     Dates: start: 20160823, end: 20160824
  20. DIHYDROCODEINE + PARACETAMOL [Concomitant]
     Dosage: RELIEVING COUGH
     Route: 065
     Dates: start: 20160820, end: 20160822
  21. CARBAZOCHROME [Concomitant]
     Active Substance: CARBAZOCHROME
     Indication: HAEMOPTYSIS
     Route: 065
     Dates: start: 20160819, end: 20160821
  22. ESTAZOLAM. [Concomitant]
     Active Substance: ESTAZOLAM
     Dosage: PROMOTE SLEEP
     Route: 065
     Dates: start: 20160816, end: 20160816
  23. PENICILLIN G SODIUM. [Concomitant]
     Active Substance: PENICILLIN G SODIUM
     Indication: SKIN TEST
     Route: 065
     Dates: start: 20160818, end: 20160819
  24. HAEMOCOAGULASE AGKISTRODON [Concomitant]
     Indication: HAEMOSTASIS
     Route: 065
     Dates: start: 20160818, end: 20160819
  25. HAEMOCOAGULASE AGKISTRODON [Concomitant]
     Route: 065
     Dates: start: 20160822, end: 20160829
  26. METHOXYPHENAMINE [Concomitant]
     Active Substance: METHOXYPHENAMINE
     Dosage: COMPOUND?RELIEVING COUGH AND ELIMINATING PHLEGM
     Route: 065
     Dates: start: 20160817, end: 20160904
  27. UBENIMEX [Concomitant]
     Active Substance: UBENIMEX
     Dosage: UBENIMEX CAPSULES
     Route: 065
     Dates: start: 20160816, end: 20160818
  28. HUMAN ALBUMIN [Concomitant]
     Active Substance: ALBUMIN HUMAN
     Dosage: ALBUMIN SUPPLEMENT
     Route: 065
     Dates: start: 20160817, end: 20160830

REACTIONS (1)
  - Haemoptysis [Not Recovered/Not Resolved]

NARRATIVE: CASE EVENT DATE: 20160901
